FAERS Safety Report 15298317 (Version 17)
Quarter: 2020Q2

REPORT INFORMATION
  Report Type: Report from Study
  Country: US (occurrence: US)
  Receive Date: 20180820
  Receipt Date: 20200623
  Transmission Date: 20200713
  Serious: Yes (Hospitalization)
  Sender: FDA-Public Use
  Company Number: US-ACTELION-A-US2018-173947

PATIENT
  Age: 45 Year
  Sex: Male
  Weight: 74.83 kg

DRUGS (9)
  1. VELETRI [Suspect]
     Active Substance: EPOPROSTENOL
     Dosage: 65 NG/KG, PER MIN
     Route: 042
  2. VELETRI [Suspect]
     Active Substance: EPOPROSTENOL
     Dosage: 63 NG/KG, PER MIN
     Route: 042
  3. TRACLEER [Suspect]
     Active Substance: BOSENTAN
     Dosage: 125 MG, BID
     Route: 048
  4. VELETRI [Suspect]
     Active Substance: EPOPROSTENOL
     Dosage: 65 NG/KG, PER MIN
     Route: 042
  5. TRACLEER [Suspect]
     Active Substance: BOSENTAN
     Indication: PULMONARY HYPERTENSION
     Dosage: 125 MG, BID
     Route: 048
  6. TRACLEER [Suspect]
     Active Substance: BOSENTAN
     Dosage: 125 MG, BID
     Route: 048
  7. SILDENAFIL CITRATE. [Concomitant]
     Active Substance: SILDENAFIL CITRATE
     Dosage: 20 MG, TID
     Route: 048
  8. VELETRI [Suspect]
     Active Substance: EPOPROSTENOL
     Indication: PULMONARY HYPERTENSION
     Dosage: 65 NG/KG, PER MIN
     Route: 042
  9. VELETRI [Suspect]
     Active Substance: EPOPROSTENOL
     Dosage: 63 NG/KG, PER MIN
     Route: 042

REACTIONS (38)
  - Fluid retention [Unknown]
  - Device occlusion [Unknown]
  - Device alarm issue [Unknown]
  - Pallor [Recovered/Resolved]
  - Underdose [Unknown]
  - Flatulence [Unknown]
  - Fluid overload [Unknown]
  - Catheter site haemorrhage [Unknown]
  - Night sweats [Unknown]
  - Cardiac disorder [Unknown]
  - Cough [Unknown]
  - Muscle spasms [Unknown]
  - Supraventricular tachycardia [Unknown]
  - Neck pain [Unknown]
  - Malaise [Not Recovered/Not Resolved]
  - Nausea [Unknown]
  - Pain in jaw [Unknown]
  - Nasopharyngitis [Unknown]
  - Hospitalisation [Unknown]
  - Dyspnoea [Recovered/Resolved]
  - Condition aggravated [Unknown]
  - Feeling abnormal [Not Recovered/Not Resolved]
  - Gastrointestinal disorder [Unknown]
  - Abdominal distension [Unknown]
  - Device physical property issue [Recovered/Resolved]
  - Insomnia [Unknown]
  - Palpitations [Unknown]
  - Cellulitis [Unknown]
  - Vomiting [Unknown]
  - Syncope [Unknown]
  - Catheter site erythema [Unknown]
  - Catheter management [Unknown]
  - Catheter site irritation [Unknown]
  - Abdominal discomfort [Unknown]
  - Device delivery system issue [Unknown]
  - Rash [Unknown]
  - Abdominal pain upper [Unknown]
  - Weight decreased [Not Recovered/Not Resolved]

NARRATIVE: CASE EVENT DATE: 20180730
